FAERS Safety Report 5318989-5 (Version None)
Quarter: 2007Q2

REPORT INFORMATION
  Report Type: 
  Country: None (occurrence: None)
  Receive Date: 20070508
  Receipt Date: 20070426
  Transmission Date: 20071010
  Serious: Yes (Hospitalization)
  Sender: FDA-Public Use
  Company Number: HQWYE882027APR07

PATIENT
  Age: 72 Year
  Sex: Female

DRUGS (4)
  1. HYPEN [Suspect]
     Indication: RHEUMATOID ARTHRITIS
     Route: 048
     Dates: start: 20070421, end: 20070424
  2. METHOTREXATE [Concomitant]
     Dosage: UNSPECIFIED
     Dates: start: 20070420, end: 20070420
  3. PREDNISOLONE [Concomitant]
     Dosage: UNSPECIFIED
     Dates: start: 20070419, end: 20070424
  4. BUCILLAMINE [Suspect]
     Indication: RHEUMATOID ARTHRITIS
     Route: 048
     Dates: start: 20070420, end: 20070424

REACTIONS (4)
  - BLOOD PRESSURE SYSTOLIC DECREASED [None]
  - DIARRHOEA [None]
  - SHOCK [None]
  - VOMITING [None]
